FAERS Safety Report 15238757 (Version 1)
Quarter: 2018Q4

REPORT INFORMATION
  Report Type: Spontaneous
  Country: TW (occurrence: TW)
  Receive Date: 20180803
  Receipt Date: 20180803
  Transmission Date: 20190204
  Serious: Yes (Other)
  Sender: FDA-Public Use
  Company Number: TW-GLAXOSMITHKLINE-TW2018GSK138322

PATIENT
  Sex: Male

DRUGS (1)
  1. PANADOL DICLOFENAC OIL PLASTER [Suspect]
     Active Substance: DICLOFENAC
     Indication: PAIN
     Dosage: UNK
     Route: 062

REACTIONS (5)
  - Intentional product misuse [Unknown]
  - Product use issue [Unknown]
  - Peptic ulcer [Unknown]
  - Application site swelling [Recovered/Resolved]
  - Application site erythema [Recovered/Resolved]
